FAERS Safety Report 9777805 (Version 1)
Quarter: 2013Q4

REPORT INFORMATION
  Report Type: Spontaneous
  Country: US (occurrence: US)
  Receive Date: 20131223
  Receipt Date: 20131223
  Transmission Date: 20140711
  Serious: No
  Sender: FDA-Public Use
  Company Number: US-BIOGENIDEC-2013BI120238

PATIENT
  Sex: Female

DRUGS (6)
  1. AVONEX [Suspect]
     Indication: MULTIPLE SCLEROSIS
     Route: 030
     Dates: start: 20021101, end: 20131107
  2. AVONEX [Suspect]
     Indication: MULTIPLE SCLEROSIS
     Route: 030
     Dates: start: 201311
  3. DEPAKOTE [Concomitant]
     Indication: BIPOLAR DISORDER
  4. CELEXA [Concomitant]
     Indication: BIPOLAR DISORDER
  5. ZYPREXA [Concomitant]
     Indication: BIPOLAR DISORDER
  6. VISTARIL [Concomitant]
     Indication: BIPOLAR DISORDER

REACTIONS (1)
  - Injection site injury [Not Recovered/Not Resolved]
